FAERS Safety Report 16729803 (Version 2)
Quarter: 2019Q3

REPORT INFORMATION
  Report Type: Spontaneous
  Country: NL (occurrence: NL)
  Receive Date: 20190822
  Receipt Date: 20190924
  Transmission Date: 20191005
  Serious: Yes (Other)
  Sender: FDA-Public Use
  Company Number: PHHY2019NL186931

PATIENT
  Age: 58 Year
  Sex: Male
  Weight: 92 kg

DRUGS (14)
  1. ATORVASTATIN CALCIUM. [Suspect]
     Active Substance: ATORVASTATIN CALCIUM
     Indication: BLOOD CHOLESTEROL INCREASED
     Dosage: 40 MG, QD (1X/DAY)
     Route: 048
     Dates: start: 201808
  2. MOMETASON FUROAAT [Concomitant]
     Dosage: 100 UG, QD
     Route: 065
     Dates: start: 20110621
  3. NITRAZEPAM [Concomitant]
     Active Substance: NITRAZEPAM
     Indication: PRODUCT USED FOR UNKNOWN INDICATION
     Dosage: 5 MG, QD
     Route: 065
  4. NAPROXEN. [Concomitant]
     Active Substance: NAPROXEN
     Indication: PRODUCT USED FOR UNKNOWN INDICATION
     Dosage: 500 MG, (1-2X/DAY)
     Route: 065
  5. VESICARE [Concomitant]
     Active Substance: SOLIFENACIN SUCCINATE
     Indication: PRODUCT USED FOR UNKNOWN INDICATION
     Dosage: 5 MG, QD (1X/DAY)
     Route: 065
     Dates: start: 20190204
  6. SALBUTAMOL [Concomitant]
     Active Substance: ALBUTEROL
     Indication: PRODUCT USED FOR UNKNOWN INDICATION
     Dosage: 100 UG, (3X/DAY AS NEEDED)
     Route: 055
  7. MOMETASON FUROAAT [Concomitant]
     Indication: RHINITIS
     Dosage: 50 UG, QD
     Route: 065
  8. ENALAPRILMALEAAT [Concomitant]
     Active Substance: ENALAPRIL MALEATE
     Indication: HYPERTENSION
     Dosage: 20 MG, QD ((10 MG, 2X/DAY)
     Route: 065
  9. DURATEARS FREE [Concomitant]
     Indication: PRODUCT USED FOR UNKNOWN INDICATION
     Dosage: 0.4 ML, PRN (10X/DAY AS NEEDED)
     Route: 065
  10. DIAZEPAM. [Concomitant]
     Active Substance: DIAZEPAM
     Indication: SLEEP DISORDER
     Dosage: 2 MG, PRN (1-3X/DAY)
     Route: 065
     Dates: start: 20120829
  11. ALPRAZOLAM. [Concomitant]
     Active Substance: ALPRAZOLAM
     Indication: PRODUCT USED FOR UNKNOWN INDICATION
     Dosage: 0.5 MG, QD (0.5 MG, 1-3X/DAY)
     Route: 065
  12. VENLAFAXINE [Concomitant]
     Active Substance: VENLAFAXINE HYDROCHLORIDE
     Indication: PRODUCT USED FOR UNKNOWN INDICATION
     Dosage: 150 MG, QD
     Route: 065
     Dates: start: 20090119
  13. TRAMADOL. [Concomitant]
     Active Substance: TRAMADOL
     Indication: PRODUCT USED FOR UNKNOWN INDICATION
     Dosage: 50 MG, (1-3X/DAY)
     Route: 065
  14. OMEPRAZOL [Concomitant]
     Active Substance: OMEPRAZOLE
     Indication: PRODUCT USED FOR UNKNOWN INDICATION
     Dosage: 20 MG, QD
     Route: 065
     Dates: start: 20100219

REACTIONS (8)
  - Social avoidant behaviour [Recovering/Resolving]
  - Insomnia [Recovering/Resolving]
  - Decreased interest [Recovering/Resolving]
  - Suicidal ideation [Recovering/Resolving]
  - Depression [Recovered/Resolved]
  - Fatigue [Recovering/Resolving]
  - Depression [Recovering/Resolving]
  - Agitation [Recovering/Resolving]

NARRATIVE: CASE EVENT DATE: 2018
